FAERS Safety Report 21365885 (Version 2)
Quarter: 2022Q4

REPORT INFORMATION
  Report Type: Spontaneous
  Country: IT (occurrence: IT)
  Receive Date: 20220922
  Receipt Date: 20221007
  Transmission Date: 20230113
  Serious: Yes (Death, Life-Threatening, Hospitalization)
  Sender: FDA-Public Use
  Company Number: IT-TEVA-2022-IT-2075628

PATIENT
  Age: 25 Year
  Sex: Female

DRUGS (10)
  1. MYCOPHENOLATE MOFETIL [Suspect]
     Active Substance: MYCOPHENOLATE MOFETIL
     Indication: Autoimmune haemolytic anaemia
     Route: 065
  2. VINCRISTINE [Suspect]
     Active Substance: VINCRISTINE
     Indication: Autoimmune haemolytic anaemia
     Route: 065
  3. TACROLIMUS [Suspect]
     Active Substance: TACROLIMUS
     Indication: Autoimmune haemolytic anaemia
     Route: 065
  4. CYCLOPHOSPHAMIDE [Suspect]
     Active Substance: CYCLOPHOSPHAMIDE
     Indication: Autoimmune haemolytic anaemia
     Route: 065
  5. RITUXIMAB [Suspect]
     Active Substance: RITUXIMAB
     Indication: Autoimmune haemolytic anaemia
     Route: 065
  6. AZATHIOPRINE [Suspect]
     Active Substance: AZATHIOPRINE
     Indication: Autoimmune haemolytic anaemia
     Route: 065
  7. SIROLIMUS [Suspect]
     Active Substance: SIROLIMUS
     Indication: Autoimmune haemolytic anaemia
     Route: 065
  8. ERYTHROPOIETIN [Suspect]
     Active Substance: ERYTHROPOIETIN
     Indication: Autoimmune haemolytic anaemia
     Route: 065
  9. IMMUNE GLOBULIN NOS [Concomitant]
     Active Substance: IMMUNE GLOBULIN NOS
     Indication: Infection prophylaxis
     Route: 058
  10. APIXABAN [Concomitant]
     Active Substance: APIXABAN
     Indication: Thrombosis prophylaxis
     Route: 065

REACTIONS (6)
  - Cardiac ventricular thrombosis [Fatal]
  - Multiple organ dysfunction syndrome [Fatal]
  - Pulmonary hypertension [Not Recovered/Not Resolved]
  - Streptococcal sepsis [Unknown]
  - Inflammation [Unknown]
  - Drug ineffective [Unknown]
